FAERS Safety Report 5271662-4 (Version None)
Quarter: 2007Q1

REPORT INFORMATION
  Report Type: 
  Country: None (occurrence: None)
  Receive Date: 20070321
  Receipt Date: 20070311
  Transmission Date: 20070707
  Serious: Yes (Other)
  Sender: FDA-Public Use
  Company Number: DE-PFIZER INC-2007019285

PATIENT
  Age: 65 Year
  Sex: Male

DRUGS (5)
  1. ATORVASTATIN CALCIUM [Suspect]
     Indication: HYPERCHOLESTEROLAEMIA
     Dosage: DAILY DOSE:80MG
     Route: 048
  2. ATORVASTATIN CALCIUM [Suspect]
     Indication: CORONARY ARTERY DISEASE
  3. EZETROL [Concomitant]
     Route: 048
  4. ASPIRIN [Concomitant]
  5. CONCOR [Concomitant]
     Route: 048

REACTIONS (3)
  - INTERVERTEBRAL DISC PROTRUSION [None]
  - LOW DENSITY LIPOPROTEIN INCREASED [None]
  - MYALGIA [None]
